FAERS Safety Report 8138466-6 (Version None)
Quarter: 2012Q1

REPORT INFORMATION
  Report Type: 
  Country: None (occurrence: None)
  Receive Date: 20120215
  Receipt Date: 20120213
  Transmission Date: 20120608
  Serious: Yes (Hospitalization, Other)
  Sender: FDA-Public Use
  Company Number: BR-JNJFOC-20120112451

PATIENT
  Sex: Female
  Weight: 80 kg

DRUGS (11)
  1. NICORETTE [Suspect]
     Indication: SMOKING CESSATION THERAPY
     Dosage: ABOUT SIX PIECES A DAY, FOR FIVE YEARS; CURRENTLY USES SPORADICALLY
     Route: 048
     Dates: start: 20070101
  2. GLUCOCORTICOID [Concomitant]
     Indication: ARTHRITIS
     Route: 065
  3. OMEGA 3-6-9 [Concomitant]
     Indication: BLOOD CHOLESTEROL INCREASED
     Route: 065
  4. ARAVA [Concomitant]
     Indication: ARTHRITIS
     Route: 065
  5. SYNTHROID [Concomitant]
     Indication: THYROID DISORDER
     Route: 065
  6. NEXIUM [Concomitant]
     Indication: GASTRIC DISORDER
     Route: 065
  7. DAFLON [Concomitant]
     Indication: CARDIOVASCULAR DISORDER
     Dosage: 450/50 MG
     Route: 065
  8. CRESTOR [Concomitant]
     Indication: BLOOD CHOLESTEROL INCREASED
     Route: 065
  9. DIOVAN HCT [Concomitant]
     Indication: HYPERTENSION
     Dosage: 325/125 MG
     Route: 065
  10. PROCORALAN [Concomitant]
     Indication: ARRHYTHMIA
     Route: 065
  11. BONIVA [Concomitant]
     Indication: OSTEOPOROSIS
     Route: 065

REACTIONS (5)
  - INTENTIONAL DRUG MISUSE [None]
  - COUGH [None]
  - DEPENDENCE [None]
  - PNEUMONIA [None]
  - NAUSEA [None]
